FAERS Safety Report 21120843 (Version 1)
Quarter: 2022Q3

REPORT INFORMATION
  Report Type: Spontaneous
  Country: US (occurrence: None)
  Receive Date: 20220722
  Receipt Date: 20220722
  Transmission Date: 20221026
  Serious: No
  Sender: FDA-Public Use
  Company Number: None

PATIENT
  Sex: Female

DRUGS (1)
  1. STELARA [Suspect]
     Active Substance: USTEKINUMAB
     Indication: Crohn^s disease
     Dosage: 90MG EVERY 8 WEEKS SC?
     Route: 058
     Dates: start: 20220607

REACTIONS (5)
  - Drug ineffective [None]
  - Diarrhoea [None]
  - Upper respiratory tract infection [None]
  - Asthenia [None]
  - Muscle spasms [None]
